FAERS Safety Report 20044685 (Version 2)
Quarter: 2021Q4

REPORT INFORMATION
  Report Type: Report from Study
  Country: JP (occurrence: JP)
  Receive Date: 20211108
  Receipt Date: 20211207
  Transmission Date: 20220303
  Serious: Yes (Death, Hospitalization, Other)
  Sender: FDA-Public Use
  Company Number: JP-NBI-J202121153BIPI

PATIENT
  Age: 74 Year
  Sex: Female
  Weight: 48 kg

DRUGS (21)
  1. OFEV [Suspect]
     Active Substance: NINTEDANIB
     Indication: Interstitial lung disease
     Route: 048
     Dates: start: 20210518
  2. OFEV [Suspect]
     Active Substance: NINTEDANIB
     Route: 048
     Dates: start: 20210601
  3. OFEV [Suspect]
     Active Substance: NINTEDANIB
     Route: 048
  4. AZOSEMIDE [Suspect]
     Active Substance: AZOSEMIDE
     Indication: Product used for unknown indication
     Route: 065
  5. SPIRONOLACTONE [Suspect]
     Active Substance: SPIRONOLACTONE
     Indication: Product used for unknown indication
     Route: 065
     Dates: start: 20210714
  6. METHOTREXATE [Concomitant]
     Active Substance: METHOTREXATE
     Indication: Interstitial lung disease
     Route: 065
     Dates: end: 20210615
  7. METHOTREXATE [Concomitant]
     Active Substance: METHOTREXATE
     Indication: Systemic scleroderma
  8. PREDNISOLONE [Concomitant]
     Active Substance: PREDNISOLONE
     Indication: Interstitial lung disease
     Route: 065
  9. PREDNISOLONE [Concomitant]
     Active Substance: PREDNISOLONE
     Indication: Systemic scleroderma
  10. ALENDRONATE SODIUM [Concomitant]
     Active Substance: ALENDRONATE SODIUM
     Indication: Product used for unknown indication
     Route: 065
  11. ALFACALCIDOL [Concomitant]
     Active Substance: ALFACALCIDOL
     Indication: Product used for unknown indication
     Route: 065
  12. FOLIC ACID [Concomitant]
     Active Substance: FOLIC ACID
     Indication: Prophylaxis
     Route: 065
     Dates: end: 20210615
  13. VONOPRAZAN FUMARATE [Concomitant]
     Active Substance: VONOPRAZAN FUMARATE
     Indication: Systemic scleroderma
     Route: 065
  14. IMIDAPRIL HYDROCHLORIDE [Concomitant]
     Active Substance: IMIDAPRIL HYDROCHLORIDE
     Indication: Product used for unknown indication
     Route: 065
  15. IMIDAPRIL HYDROCHLORIDE [Concomitant]
     Active Substance: IMIDAPRIL HYDROCHLORIDE
     Route: 065
     Dates: start: 20210714
  16. BISOPROLOL FUMARATE [Concomitant]
     Active Substance: BISOPROLOL FUMARATE
     Indication: Product used for unknown indication
     Route: 065
  17. BISOPROLOL FUMARATE [Concomitant]
     Active Substance: BISOPROLOL FUMARATE
     Route: 065
     Dates: start: 20210721
  18. ROSUVASTATIN OD [Concomitant]
     Indication: Product used for unknown indication
     Route: 065
  19. AMLODIPINE [Concomitant]
     Active Substance: AMLODIPINE BESYLATE
     Indication: Product used for unknown indication
     Route: 065
  20. LOPERAMIDE HYDROCHLORIDE [Concomitant]
     Active Substance: LOPERAMIDE HYDROCHLORIDE
     Indication: Product used for unknown indication
     Route: 065
     Dates: start: 20210728
  21. MIRCERA [Concomitant]
     Active Substance: METHOXY POLYETHYLENE GLYCOL-EPOETIN BETA
     Indication: Product used for unknown indication
     Route: 065

REACTIONS (7)
  - Pneumonia aspiration [Fatal]
  - Cardiac failure [Not Recovered/Not Resolved]
  - Renal failure [Not Recovered/Not Resolved]
  - Cardiac failure [Not Recovered/Not Resolved]
  - Diarrhoea [Recovered/Resolved]
  - Renal failure [Not Recovered/Not Resolved]
  - Nausea [Recovered/Resolved]

NARRATIVE: CASE EVENT DATE: 20210525
